FAERS Safety Report 25213655 (Version 1)
Quarter: 2025Q2

REPORT INFORMATION
  Report Type: Spontaneous
  Country: US (occurrence: US)
  Receive Date: 20250418
  Receipt Date: 20250418
  Transmission Date: 20250717
  Serious: Yes (Other)
  Sender: ALEXION PHARMACEUTICALS
  Company Number: US-AstraZeneca-CH-00847184A

PATIENT

DRUGS (2)
  1. KOSELUGO [Suspect]
     Active Substance: SELUMETINIB
     Indication: Neurofibromatosis
  2. TOPAMAX [Suspect]
     Active Substance: TOPIRAMATE
     Route: 065

REACTIONS (1)
  - Nephrolithiasis [Recovered/Resolved]
